FAERS Safety Report 6421152-8 (Version None)
Quarter: 2009Q4

REPORT INFORMATION
  Report Type: 
  Country: None (occurrence: None)
  Receive Date: 20091030
  Receipt Date: 20091021
  Transmission Date: 20100525
  Serious: Yes (Other)
  Sender: FDA-Public Use
  Company Number: CA-JNJFOC-20090403191

PATIENT
  Sex: Female
  Weight: 119 kg

DRUGS (1)
  1. REMICADE [Suspect]
     Indication: CROHN'S DISEASE
     Route: 042

REACTIONS (4)
  - CONTUSION [None]
  - INFUSION RELATED REACTION [None]
  - PAIN IN EXTREMITY [None]
  - SKIN DISCOLOURATION [None]
